FAERS Safety Report 11096143 (Version 1)
Quarter: 2015Q2

REPORT INFORMATION
  Report Type: Spontaneous
  Country: IT (occurrence: None)
  Receive Date: 20150505
  Receipt Date: 20150505
  Transmission Date: 20150821
  Serious: Yes (Other)
  Sender: FDA-Public Use
  Company Number: FK201502088

PATIENT
  Age: 51 Year
  Sex: Female

DRUGS (2)
  1. VALPROATE (MANUFACTURER UNKNOWN) (VALPROATE SODIUM) (VALPROATE SODIUM) [Suspect]
     Active Substance: VALPROATE SODIUM
     Indication: BIPOLAR DISORDER
     Dates: start: 2008
  2. VALPROATE (MANUFACTURER UNKNOWN) (VALPROATE SODIUM) (VALPROATE SODIUM) [Suspect]
     Active Substance: VALPROATE SODIUM
     Indication: DEPRESSION
     Dates: start: 2008

REACTIONS (4)
  - Haemoptysis [None]
  - Pulmonary alveolar haemorrhage [None]
  - Product use issue [None]
  - Anaemia [None]
